FAERS Safety Report 6604701-6 (Version None)
Quarter: 2010Q1

REPORT INFORMATION
  Report Type: 
  Country: None (occurrence: None)
  Receive Date: 20100226
  Receipt Date: 20100222
  Transmission Date: 20100710
  Serious: Yes (Hospitalization)
  Sender: FDA-Public Use
  Company Number: US-RB-003118-10

PATIENT
  Age: 58 Year
  Sex: Male

DRUGS (1)
  1. SUBOXONE [Suspect]
     Route: 060
     Dates: start: 20100104

REACTIONS (4)
  - DRUG DEPENDENCE [None]
  - EYELID DISORDER [None]
  - PROCEDURAL PAIN [None]
  - PROSTATE CANCER [None]
